FAERS Safety Report 6046292-7 (Version None)
Quarter: 2009Q1

REPORT INFORMATION
  Report Type: 
  Country: None (occurrence: None)
  Receive Date: 20090121
  Receipt Date: 20090121
  Transmission Date: 20090719
  Serious: Yes (Other)
  Sender: FDA-Public Use
  Company Number: None

PATIENT
  Age: 50 Year
  Sex: Male
  Weight: 80.2867 kg

DRUGS (1)
  1. LEVAQUIN [Suspect]
     Indication: PROSTATITIS
     Dosage: 1 TABLET DAILY PO
     Route: 048
     Dates: start: 20081121, end: 20081128

REACTIONS (3)
  - MUSCLE INJURY [None]
  - PAIN IN EXTREMITY [None]
  - TENDONITIS [None]
